FAERS Safety Report 7535388-6 (Version None)
Quarter: 2011Q2

REPORT INFORMATION
  Report Type: 
  Country: None (occurrence: None)
  Receive Date: 20110609
  Receipt Date: 20080514
  Transmission Date: 20111010
  Serious: Yes (Death, Hospitalization)
  Sender: FDA-Public Use
  Company Number: PHMT2006CA01185

PATIENT
  Sex: Female

DRUGS (7)
  1. SANDOSTATIN LAR [Suspect]
     Indication: ANGIODYSPLASIA
     Dosage: 30 MG, QMO
     Route: 030
     Dates: start: 20040904
  2. ATIVAN [Concomitant]
     Dosage: UNKNOWN
  3. LEVOTHYROXINE SODIUM [Concomitant]
     Dosage: UNKNOWN
  4. GLYBURIDE [Concomitant]
     Dosage: UNKNOWN
  5. METOPROLOL [Concomitant]
     Dosage: UNKNOWN
  6. WARFARIN SODIUM [Concomitant]
     Dosage: UNKNOWN
  7. SYNTHROID [Concomitant]
     Dosage: UNKNOWN

REACTIONS (5)
  - ANAEMIA [None]
  - COUGH [None]
  - PNEUMONIA [None]
  - OXYGEN SATURATION DECREASED [None]
  - DYSPNOEA [None]
